FAERS Safety Report 13456154 (Version 1)
Quarter: 2017Q2

REPORT INFORMATION
  Report Type: Spontaneous
  Country: US (occurrence: US)
  Receive Date: 20170419
  Receipt Date: 20170419
  Transmission Date: 20170830
  Serious: No
  Sender: FDA-Public Use
  Company Number: US-ASTRAZENECA-2017SE40517

PATIENT
  Sex: Female
  Weight: 69.9 kg

DRUGS (3)
  1. AMOXICILLIN. [Concomitant]
     Active Substance: AMOXICILLIN
     Indication: PRODUCT USED FOR UNKNOWN INDICATION
  2. CLARITHROMYCIN. [Concomitant]
     Active Substance: CLARITHROMYCIN
     Indication: PRODUCT USED FOR UNKNOWN INDICATION
     Dosage: 500.0MG UNKNOWN
  3. PULMICORT FLEXHALER [Suspect]
     Active Substance: BUDESONIDE
     Indication: INFLAMMATION
     Route: 055
     Dates: start: 20170410

REACTIONS (6)
  - Device malfunction [Unknown]
  - Intentional product misuse [Unknown]
  - Drug dose omission [Unknown]
  - Off label use [Unknown]
  - Dysgeusia [Unknown]
  - Product use in unapproved indication [Unknown]
